FAERS Safety Report 5449870-9 (Version None)
Quarter: 2007Q3

REPORT INFORMATION
  Report Type: 
  Country: None (occurrence: None)
  Receive Date: 20070907
  Receipt Date: 20070829
  Transmission Date: 20080115
  Serious: Yes (Other)
  Sender: FDA-Public Use
  Company Number: S07-USA-03374-01

PATIENT
  Sex: Male
  Weight: 65.7716 kg

DRUGS (1)
  1. LEXAPRO [Suspect]
     Indication: DEPRESSION
     Dosage: 10 MG QD PO
     Route: 048
     Dates: start: 20070419, end: 20070521

REACTIONS (3)
  - CONVULSION [None]
  - FALL [None]
  - FEELING HOT [None]
